FAERS Safety Report 10080794 (Version 3)
Quarter: 2014Q2

REPORT INFORMATION
  Report Type: Spontaneous
  Country: US (occurrence: US)
  Receive Date: 20140416
  Receipt Date: 20140502
  Transmission Date: 20141212
  Serious: Yes (Hospitalization, Disabling)
  Sender: FDA-Public Use
  Company Number: US-JNJFOC-20140406401

PATIENT
  Age: 74 Year
  Sex: Female
  Weight: 89.7 kg

DRUGS (7)
  1. XARELTO [Suspect]
     Indication: ATRIAL FIBRILLATION
     Dosage: FOR ONE DAY (GOT 2 DOSES)
     Route: 048
     Dates: start: 20130228
  2. XARELTO [Suspect]
     Indication: ATRIAL FIBRILLATION
     Route: 048
     Dates: start: 20130301, end: 20130303
  3. XARELTO [Suspect]
     Indication: ATRIAL FIBRILLATION
     Route: 048
  4. XARELTO [Suspect]
     Indication: CEREBROVASCULAR ACCIDENT PROPHYLAXIS
     Dosage: FOR ONE DAY (GOT 2 DOSES)
     Route: 048
     Dates: start: 20130228
  5. XARELTO [Suspect]
     Indication: CEREBROVASCULAR ACCIDENT PROPHYLAXIS
     Route: 048
     Dates: start: 20130301, end: 20130303
  6. XARELTO [Suspect]
     Indication: CEREBROVASCULAR ACCIDENT PROPHYLAXIS
     Route: 048
  7. LOVENOX [Suspect]
     Indication: THROMBOSIS PROPHYLAXIS
     Route: 058
     Dates: start: 20130228

REACTIONS (5)
  - Spinal haematoma [Recovered/Resolved with Sequelae]
  - Cough [Unknown]
  - Spinal cord compression [Unknown]
  - Spastic paraplegia [Not Recovered/Not Resolved]
  - Inappropriate schedule of drug administration [Unknown]
